FAERS Safety Report 12982961 (Version 1)
Quarter: 2016Q4

REPORT INFORMATION
  Report Type: Spontaneous
  Country: US (occurrence: US)
  Receive Date: 20161129
  Receipt Date: 20161129
  Transmission Date: 20170207
  Serious: No
  Sender: FDA-Public Use
  Company Number: US-MALLINCKRODT-T201600705

PATIENT
  Age: 32 Year
  Sex: Male
  Weight: 84 kg

DRUGS (4)
  1. FENTANYL SANDOZ [Concomitant]
     Active Substance: FENTANYL
     Indication: PAIN
     Dosage: 100 MCG/HR EVERY 3 DAYS
  2. FENTANYL TRANSDERMAL SYSTEM [Suspect]
     Active Substance: FENTANYL
     Indication: PAIN
     Dosage: 100 MCG/HR EVERY 3 DAYS
     Route: 062
     Dates: start: 20160219, end: 20160222
  3. OXYCODONE [Concomitant]
     Active Substance: OXYCODONE
     Dosage: 30 MG
  4. FENTANYL SANDOZ [Concomitant]
     Active Substance: FENTANYL
     Dosage: 100 MCG/HR EVERY 3 DAYS
     Dates: start: 20160222

REACTIONS (2)
  - Pain [Recovered/Resolved]
  - Withdrawal syndrome [Recovered/Resolved]

NARRATIVE: CASE EVENT DATE: 20160219
